FAERS Safety Report 14418658 (Version 1)
Quarter: 2018Q1

REPORT INFORMATION
  Report Type: Spontaneous
  Country: US (occurrence: US)
  Receive Date: 20180122
  Receipt Date: 20180122
  Transmission Date: 20180509
  Serious: No
  Sender: FDA-Public Use
  Company Number: US-TEVA-809135ACC

PATIENT
  Age: 73 Year
  Sex: Female

DRUGS (1)
  1. TRAZODONE HYDROCHLORIDE. [Suspect]
     Active Substance: TRAZODONE HYDROCHLORIDE
     Indication: SLEEP DISORDER
     Dates: start: 20170909

REACTIONS (5)
  - Headache [Unknown]
  - Product use in unapproved indication [Unknown]
  - Vision blurred [Unknown]
  - Neuralgia [Unknown]
  - Skin disorder [Unknown]

NARRATIVE: CASE EVENT DATE: 20170909
